FAERS Safety Report 6864003-X (Version None)
Quarter: 2010Q3

REPORT INFORMATION
  Report Type: 
  Country: None (occurrence: None)
  Receive Date: 20100721
  Receipt Date: 20080317
  Transmission Date: 20110219
  Serious: No
  Sender: FDA-Public Use
  Company Number: US-PFIZER INC-2008024124

PATIENT
  Sex: Female
  Weight: 62.1 kg

DRUGS (10)
  1. CHANTIX [Suspect]
     Indication: SMOKING CESSATION THERAPY
     Dates: start: 20080301
  2. VICODIN [Concomitant]
  3. LEVOTHYROXINE SODIUM [Concomitant]
  4. ACETYLSALICYLIC ACID [Concomitant]
  5. FOLIC ACID [Concomitant]
  6. METOPROLOL [Concomitant]
  7. ALTACE [Concomitant]
  8. TRAZODONE HYDROCHLORIDE [Concomitant]
  9. FENTANYL [Concomitant]
  10. DYAZIDE [Concomitant]

REACTIONS (1)
  - VOMITING [None]
